FAERS Safety Report 5402481-3 (Version None)
Quarter: 2007Q3

REPORT INFORMATION
  Report Type: 
  Country: None (occurrence: None)
  Receive Date: 20070801
  Receipt Date: 20060712
  Transmission Date: 20080115
  Serious: No
  Sender: FDA-Public Use
  Company Number: A0612033A

PATIENT
  Age: 40 Year
  Sex: Female

DRUGS (21)
  1. IMITREX [Suspect]
     Indication: MIGRAINE
     Dosage: 100MG TWICE PER DAY
     Route: 048
     Dates: start: 20060706, end: 20060711
  2. CENTRUM SILVER [Concomitant]
  3. ASCORBIC ACID [Concomitant]
  4. NIACIN [Concomitant]
  5. AZO-STANDARD [Concomitant]
  6. ACCOLATE [Concomitant]
  7. BUPROPION HCL [Concomitant]
  8. CYCLOBENZAPRINE HCL [Concomitant]
  9. DEPAKOTE [Concomitant]
  10. PREMARIN [Concomitant]
  11. REQUIP [Concomitant]
  12. ZELNORM [Concomitant]
  13. VERAPAMIL [Concomitant]
  14. ALPRAZOLAM [Concomitant]
  15. OXYCODONE HCL [Concomitant]
  16. IBUPROFEN [Concomitant]
  17. LACTOSE [Concomitant]
  18. TEMAZEPAM [Concomitant]
  19. COMBIVENT [Concomitant]
  20. BENADRYL [Concomitant]
  21. METHYLPHENIDATE HCL [Concomitant]

REACTIONS (1)
  - DRUG INEFFECTIVE [None]
